FAERS Safety Report 25948527 (Version 3)
Quarter: 2025Q4

REPORT INFORMATION
  Report Type: Spontaneous
  Country: US (occurrence: US)
  Receive Date: 20251022
  Receipt Date: 20251208
  Transmission Date: 20260118
  Serious: Yes (Other)
  Sender: PFIZER
  Company Number: US-PFIZER INC-202500206958

PATIENT
  Age: 35 Year
  Sex: Female
  Weight: 61.224 kg

DRUGS (9)
  1. DEPO-PROVERA [Suspect]
     Active Substance: MEDROXYPROGESTERONE ACETATE
     Indication: Menstrual disorder
     Dosage: EVERY 11 WEEKS
     Route: 058
     Dates: start: 20241217
  2. DEPO-PROVERA [Suspect]
     Active Substance: MEDROXYPROGESTERONE ACETATE
     Dosage: 104 MG, EVERY 13 WEEKS
     Dates: start: 20241218, end: 20251017
  3. GABAPENTIN [Concomitant]
     Active Substance: GABAPENTIN
     Indication: Nerve injury
     Dosage: 300 MG, 2X/DAY
  4. CARBAMAZEPINE [Concomitant]
     Active Substance: CARBAMAZEPINE
     Indication: Affective disorder
     Dosage: 100 MG, 2X/DAY
  5. WELLBUTRIN [Concomitant]
     Active Substance: BUPROPION HYDROCHLORIDE
     Indication: Affective disorder
     Dosage: 150 MG, 1X/DAY
  6. MIRTAZAPINE [Concomitant]
     Active Substance: MIRTAZAPINE
     Indication: Anxiety
     Dosage: 75 MG, 1X/DAY
  7. TIZANIDINE [Concomitant]
     Active Substance: TIZANIDINE
     Indication: Back injury
     Dosage: 4 MG, 3X/DAY
  8. ADDERALL [Concomitant]
     Active Substance: AMPHETAMINE ASPARTATE\AMPHETAMINE SULFATE\DEXTROAMPHETAMINE SACCHARATE\DEXTROAMPHETAMINE SULFATE
     Indication: Attention deficit hyperactivity disorder
     Dosage: 10 MG, 1X/DAY
  9. SEMAGLUTIDE [Concomitant]
     Active Substance: SEMAGLUTIDE
     Indication: Weight abnormal
     Dosage: 18 MG OF 25 SHOT 1XWEEK

REACTIONS (11)
  - Device mechanical issue [Recovered/Resolved]
  - Device occlusion [Recovered/Resolved]
  - Wrong technique in device usage process [Recovered/Resolved]
  - Injection site pain [Recovered/Resolved]
  - Injection site swelling [Recovered/Resolved]
  - Injection site bruising [Recovered/Resolved]
  - Injection site infection [Recovered/Resolved]
  - Injection site discharge [Recovered/Resolved]
  - Accidental exposure to product [Recovered/Resolved]
  - Exposure via skin contact [Recovered/Resolved]
  - Off label use [Unknown]

NARRATIVE: CASE EVENT DATE: 20241218
